FAERS Safety Report 11438991 (Version 1)
Quarter: 2015Q3

REPORT INFORMATION
  Report Type: Spontaneous
  Country: US (occurrence: US)
  Receive Date: 20150901
  Receipt Date: 20150901
  Transmission Date: 20151125
  Serious: No
  Sender: FDA-Public Use
  Company Number: US-ROCHE-1055008

PATIENT
  Sex: Female

DRUGS (2)
  1. PEGASYS [Suspect]
     Active Substance: PEGINTERFERON ALFA-2A
     Indication: CHRONIC HEPATITIS C
     Route: 058
     Dates: start: 20110905, end: 20120213
  2. COPEGUS [Suspect]
     Active Substance: RIBAVIRIN
     Indication: CHRONIC HEPATITIS C
     Route: 048
     Dates: start: 20110905, end: 20120213

REACTIONS (11)
  - Irritability [Unknown]
  - Decreased appetite [Unknown]
  - Food craving [Unknown]
  - Mood swings [Unknown]
  - Vomiting [Unknown]
  - Dysgeusia [Unknown]
  - Weight decreased [Unknown]
  - Alopecia [Unknown]
  - Insomnia [Unknown]
  - Dyspnoea exertional [Unknown]
  - Hearing impaired [Unknown]
